FAERS Safety Report 10979008 (Version 1)
Quarter: 2015Q2

REPORT INFORMATION
  Report Type: Spontaneous
  Country: US (occurrence: None)
  Receive Date: 20150401
  Receipt Date: 20150401
  Transmission Date: 20150821
  Serious: No
  Sender: FDA-Public Use
  Company Number: None

PATIENT
  Age: 32 Year
  Sex: Male
  Weight: 116.12 kg

DRUGS (9)
  1. HYDROCODONE/ACETAMINOPHEN [Suspect]
     Active Substance: ACETAMINOPHEN\HYDROCODONE
     Indication: BACK PAIN
     Route: 048
     Dates: start: 20150101, end: 20150331
  2. COLCHICINE. [Concomitant]
     Active Substance: COLCHICINE
  3. METHOCARBAMOL. [Concomitant]
     Active Substance: METHOCARBAMOL
  4. MELOXICAM. [Concomitant]
     Active Substance: MELOXICAM
  5. HYDROCODONE/ACETAMINOPHEN [Suspect]
     Active Substance: ACETAMINOPHEN\HYDROCODONE
     Indication: PAIN
     Route: 048
     Dates: start: 20150101, end: 20150331
  6. GABAPENTIN. [Concomitant]
     Active Substance: GABAPENTIN
  7. LIDOCAINE. [Concomitant]
     Active Substance: LIDOCAINE
  8. ALLOPURINOL. [Concomitant]
     Active Substance: ALLOPURINOL
  9. TESTOSTERONE GEL [Concomitant]
     Active Substance: TESTOSTERONE

REACTIONS (1)
  - Abdominal discomfort [None]

NARRATIVE: CASE EVENT DATE: 20150331
